FAERS Safety Report 15042812 (Version 1)
Quarter: 2018Q2

REPORT INFORMATION
  Report Type: Spontaneous
  Country: US (occurrence: US)
  Receive Date: 20180621
  Receipt Date: 20180621
  Transmission Date: 20180711
  Serious: Yes (Other)
  Sender: FDA-Public Use
  Company Number: US-SA-2018SA090730

PATIENT
  Age: 58 Year
  Sex: Female
  Weight: 55.79 kg

DRUGS (3)
  1. TAXOTERE [Suspect]
     Active Substance: DOCETAXEL
     Indication: BREAST CANCER
     Dosage: 124 MG, Q3W
     Route: 042
     Dates: start: 201007, end: 201007
  2. TAXOTERE [Suspect]
     Active Substance: DOCETAXEL
     Dosage: 124 UNK, Q3W
     Route: 042
     Dates: start: 201011, end: 201011
  3. NEOSAR [Concomitant]
     Active Substance: CYCLOPHOSPHAMIDE

REACTIONS (2)
  - Alopecia [Recovering/Resolving]
  - Psychological trauma [Unknown]

NARRATIVE: CASE EVENT DATE: 201008
